FAERS Safety Report 11796065 (Version 1)
Quarter: 2015Q4

REPORT INFORMATION
  Report Type: Spontaneous
  Country: US (occurrence: None)
  Receive Date: 20151202
  Receipt Date: 20151202
  Transmission Date: 20160305
  Serious: Yes (Life-Threatening)
  Sender: FDA-Public Use
  Company Number: None

PATIENT
  Age: 74 Year
  Sex: Male
  Weight: 105.1 kg

DRUGS (1)
  1. FENTANYL. [Suspect]
     Active Substance: FENTANYL
     Indication: ANGIOGRAM
     Route: 042
     Dates: start: 20150828, end: 20150901

REACTIONS (2)
  - Apnoea [None]
  - Respiratory depression [None]

NARRATIVE: CASE EVENT DATE: 20150901
